FAERS Safety Report 15675340 (Version 1)
Quarter: 2018Q4

REPORT INFORMATION
  Report Type: Spontaneous
  Country: FR (occurrence: FR)
  Receive Date: 20181130
  Receipt Date: 20181130
  Transmission Date: 20190205
  Serious: Yes (Hospitalization)
  Sender: FDA-Public Use
  Company Number: FR-ZYDUS-030788

PATIENT
  Age: 46 Year
  Sex: Male

DRUGS (6)
  1. CITALOPRAM [Suspect]
     Active Substance: CITALOPRAM HYDROBROMIDE
     Indication: INTENTIONAL OVERDOSE
     Route: 048
     Dates: start: 20181001, end: 20181001
  2. AMITRIPTYLINE [Suspect]
     Active Substance: AMITRIPTYLINE
     Indication: INTENTIONAL OVERDOSE
     Route: 048
     Dates: start: 20181001, end: 20181001
  3. KETOPROFENE [Suspect]
     Active Substance: KETOPROFEN
     Indication: INTENTIONAL OVERDOSE
     Route: 048
     Dates: start: 20181001, end: 20181001
  4. BROMAZEPAM [Suspect]
     Active Substance: BROMAZEPAM
     Indication: INTENTIONAL OVERDOSE
     Route: 048
     Dates: start: 20181001, end: 20181001
  5. CANDESARTAN. [Suspect]
     Active Substance: CANDESARTAN
     Indication: INTENTIONAL OVERDOSE
     Route: 048
     Dates: start: 20181001, end: 20181001
  6. ALCOHOL. [Suspect]
     Active Substance: ALCOHOL
     Indication: INTENTIONAL OVERDOSE
     Route: 048
     Dates: start: 20181001, end: 20181001

REACTIONS (2)
  - Coma [Recovered/Resolved]
  - Poisoning deliberate [Recovered/Resolved with Sequelae]

NARRATIVE: CASE EVENT DATE: 20181001
